FAERS Safety Report 12856375 (Version 1)
Quarter: 2016Q4

REPORT INFORMATION
  Report Type: Spontaneous
  Country: US (occurrence: US)
  Receive Date: 20161018
  Receipt Date: 20161018
  Transmission Date: 20170207
  Serious: No
  Sender: FDA-Public Use
  Company Number: US-BAYER-2016-200508

PATIENT
  Age: 78 Year
  Sex: Female
  Weight: 57.6 kg

DRUGS (1)
  1. ALEVE PM [Suspect]
     Active Substance: DIPHENHYDRAMINE HYDROCHLORIDE\NAPROXEN SODIUM
     Indication: PAIN
     Dosage: 1 DF, UNK
     Route: 048
     Dates: start: 201608, end: 20161014

REACTIONS (7)
  - Rash [None]
  - Product use issue [None]
  - Rash pruritic [None]
  - Insomnia [None]
  - Erythema [None]
  - Eye contusion [None]
  - Pruritus [None]

NARRATIVE: CASE EVENT DATE: 201608
